FAERS Safety Report 9330048 (Version 2)
Quarter: 2013Q3

REPORT INFORMATION
  Report Type: Spontaneous
  Country: US (occurrence: None)
  Receive Date: 20130531
  Receipt Date: 20130716
  Transmission Date: 20140515
  Serious: Yes (Hospitalization, Other)
  Sender: FDA-Public Use
  Company Number: 2013-204

PATIENT
  Age: 76 Year
  Sex: Female
  Weight: 67.6 kg

DRUGS (20)
  1. PRIALT [Suspect]
     Indication: ARTHRALGIA
  2. PRIALT [Suspect]
     Indication: INTERVERTEBRAL DISC DEGENERATION
  3. PRIALT [Suspect]
     Indication: SPINAL COLUMN STENOSIS
  4. GABAPENTIN (GABAPENTIN) [Concomitant]
  5. AMLODIPINE (AMLODIPINE BESILATE) [Concomitant]
  6. DILTIAZEM (DILTIAZEM HYDROCHLORIDE) [Concomitant]
  7. LISINOPRIL (LISINOPRIL) [Concomitant]
  8. SPIRIVA (TIOTROPIUM BROMIDE) [Concomitant]
  9. NABUMETONE (NABUMETONE) [Concomitant]
  10. DIAZEPAM (DIAZEPAM) [Concomitant]
  11. LORATIDINE [Concomitant]
  12. FLUTICASONE (FLUTICASONE PROPIONATE) [Concomitant]
  13. PROAIR (SALBUTAMOL SULFATE) [Concomitant]
  14. ADVAIR (FLUTICASONE PROPIONATE, SALMETROL XINAFOATE) [Concomitant]
  15. HYDROCODONE BITARTRATE AND ACETAMINOPHEN (HYDROCODONE BITARTRATE, PARACETAMOL) [Concomitant]
  16. VITORIN (EZETIMIBE, SIMVASTATIN) [Concomitant]
  17. OMEPRAZOLE (OMEPRAZOLE) [Concomitant]
  18. CYMBALTA (DULOXETINE HYDROCHLORIDE) [Concomitant]
  19. DIGOXIN (DIGOXIN) [Suspect]
  20. ARTHROTEC [Concomitant]

REACTIONS (7)
  - Delusion [None]
  - Pneumonia [None]
  - Respiratory failure [None]
  - Confusional state [None]
  - Hypersomnia [None]
  - Delusion [None]
  - Haematemesis [None]
